FAERS Safety Report 20817861 (Version 1)
Quarter: 2022Q2

REPORT INFORMATION
  Report Type: Spontaneous
  Country: US (occurrence: US)
  Receive Date: 20220512
  Receipt Date: 20220512
  Transmission Date: 20220721
  Serious: Yes (Death, Hospitalization)
  Sender: FDA-Public Use
  Company Number: US-SUN PHARMACEUTICAL INDUSTRIES LTD-2022R1-336389

PATIENT
  Sex: Male

DRUGS (5)
  1. AMOXICILLIN [Suspect]
     Active Substance: AMOXICILLIN
     Indication: Prolonged rupture of membranes
     Dosage: UNK
     Route: 064
  2. AMPICILLIN [Suspect]
     Active Substance: AMPICILLIN
     Indication: Prolonged rupture of membranes
     Dosage: 48 HOURS
     Route: 064
  3. AZITHROMYCIN [Suspect]
     Active Substance: AZITHROMYCIN
     Indication: Prolonged rupture of membranes
     Dosage: SINGLE DOSE
     Route: 064
  4. DOBUTAMINE [Suspect]
     Active Substance: DOBUTAMINE HYDROCHLORIDE
     Indication: Hypotension
     Dosage: UNK
     Route: 065
  5. DOPAMINE [Suspect]
     Active Substance: DOPAMINE HYDROCHLORIDE
     Indication: Hypotension
     Dosage: UNK
     Route: 065

REACTIONS (5)
  - Drug ineffective [Fatal]
  - Premature baby [Unknown]
  - Low birth weight baby [Unknown]
  - Hypotension [Unknown]
  - Foetal exposure during pregnancy [Unknown]
